FAERS Safety Report 6434106-2 (Version None)
Quarter: 2009Q4

REPORT INFORMATION
  Report Type: 
  Country: None (occurrence: None)
  Receive Date: 20091110
  Receipt Date: 20080919
  Transmission Date: 20100525
  Serious: No
  Sender: FDA-Public Use
  Company Number: US-ASTRAZENECA-2009UW14304

PATIENT
  Age: 64 Year
  Sex: Female

DRUGS (6)
  1. PRILOSEC OTC [Suspect]
     Indication: GASTROOESOPHAGEAL REFLUX DISEASE
     Dosage: 2 TABLET, 2 /DAY
     Route: 048
  2. RESPITOL [Concomitant]
     Dosage: UNKNOWN
  3. EL PROZOLONE [Concomitant]
     Dosage: UNKNOWN
  4. ALLEGRA [Concomitant]
     Dosage: UNKNOWN
  5. ATENOLOL [Concomitant]
     Dosage: UNKNOWN
  6. PREMPRO [Concomitant]
     Dosage: UNKNOWN

REACTIONS (1)
  - DYSPNOEA [None]
